FAERS Safety Report 21567053 (Version 1)
Quarter: 2022Q4

REPORT INFORMATION
  Report Type: Spontaneous
  Country: US (occurrence: None)
  Receive Date: 20221107
  Receipt Date: 20221107
  Transmission Date: 20230113
  Serious: Yes (Hospitalization, Disabling)
  Sender: FDA-Public Use
  Company Number: None

PATIENT
  Age: 52 Year
  Sex: Male
  Weight: 90 kg

DRUGS (1)
  1. VUITY [Suspect]
     Active Substance: PILOCARPINE HYDROCHLORIDE
     Indication: Visual acuity reduced
     Dosage: OTHER QUANTITY : 1 DROP(S);?
     Route: 047

REACTIONS (3)
  - Retinal tear [None]
  - Retinal detachment [None]
  - Blindness [None]

NARRATIVE: CASE EVENT DATE: 20220411
